FAERS Safety Report 9248390 (Version 1)
Quarter: 2013Q1

REPORT INFORMATION
  Report Type: Spontaneous
  Country: US (occurrence: None)
  Receive Date: 20121113
  Receipt Date: 20121113
  Transmission Date: 20140127
  Serious: Yes (Other)
  Sender: FDA-Public Use
  Company Number: PHEH2012US005153

PATIENT
  Age: 60 Year
  Sex: Female

DRUGS (4)
  1. TRILEPTAL (OXCARBAZEPINE) [Suspect]
  2. PROZAC (FLUOXETINE HYDROCHLORIDE) [Concomitant]
  3. SINGULAIR [Concomitant]
  4. NEURONTIN (GABAPENTIN) [Concomitant]

REACTIONS (1)
  - Convulsion [None]
